FAERS Safety Report 19469503 (Version 1)
Quarter: 2021Q2

REPORT INFORMATION
  Report Type: Spontaneous
  Country: US (occurrence: US)
  Receive Date: 20210629
  Receipt Date: 20210629
  Transmission Date: 20210717
  Serious: No
  Sender: FDA-Public Use
  Company Number: US-ASTRAZENECA-2021A510871

PATIENT
  Age: 72 Year
  Sex: Female
  Weight: 90.7 kg

DRUGS (1)
  1. FARXIGA [Suspect]
     Active Substance: DAPAGLIFLOZIN PROPANEDIOL
     Indication: TYPE 2 DIABETES MELLITUS
     Dosage: DAILY
     Route: 048
     Dates: start: 2020

REACTIONS (4)
  - Blister [Unknown]
  - Gait disturbance [Unknown]
  - Rash [Unknown]
  - Rash vesicular [Unknown]

NARRATIVE: CASE EVENT DATE: 2020
